FAERS Safety Report 20968926 (Version 2)
Quarter: 2022Q2

REPORT INFORMATION
  Report Type: Spontaneous
  Country: IN (occurrence: IN)
  Receive Date: 20220616
  Receipt Date: 20220616
  Transmission Date: 20220721
  Serious: Yes (Death, Life-Threatening, Hospitalization, Other)
  Sender: FDA-Public Use
  Company Number: IN-MLMSERVICE-20220606-3598540-1

PATIENT
  Age: 60 Year
  Sex: Male

DRUGS (1)
  1. METHOTREXATE SODIUM [Suspect]
     Active Substance: METHOTREXATE SODIUM
     Indication: Psoriasis
     Dosage: 15 MG, 1X/DAY

REACTIONS (8)
  - Incorrect dose administered [Fatal]
  - Septic shock [Fatal]
  - Toxicity to various agents [Fatal]
  - Hepatotoxicity [Unknown]
  - Renal injury [Unknown]
  - Mucosal ulceration [Unknown]
  - Haematotoxicity [Unknown]
  - Skin ulcer [Unknown]
